FAERS Safety Report 5797498-3 (Version None)
Quarter: 2008Q2

REPORT INFORMATION
  Report Type: 
  Country: None (occurrence: None)
  Receive Date: 20080630
  Receipt Date: 20080617
  Transmission Date: 20081010
  Serious: Yes (Hospitalization)
  Sender: FDA-Public Use
  Company Number: 2008-02187

PATIENT
  Age: 59 Year
  Sex: Male
  Weight: 67.2 kg

DRUGS (8)
  1. VELCADE [Suspect]
     Indication: MANTLE CELL LYMPHOMA
     Dosage: 1.3 MG/M2,   IV BOLUS
     Route: 040
     Dates: start: 20080529, end: 20080601
  2. RITUXIMAB(RITUXIMAB) INJECTION, 375MG/M2 [Suspect]
     Indication: MANTLE CELL LYMPHOMA
     Dosage: 375 MG/M2 , INTRAVENOUS
     Route: 042
     Dates: start: 20080529
  3. CYCLOPHOSPHAMIDE [Suspect]
     Indication: MANTLE CELL LYMPHOMA
     Dosage: 300 MG/M2, INTRAVENOUS
     Route: 042
     Dates: start: 20080529
  4. DOXORUBICIN HCL [Suspect]
     Indication: MANTLE CELL LYMPHOMA
     Dosage: 25 MG/M2, INTRAVENOUS
     Route: 042
     Dates: start: 20080529
  5. VINCRISTINE [Suspect]
     Indication: MANTLE CELL LYMPHOMA
     Dosage: 1 MG, IV BOLUS
     Route: 040
     Dates: start: 20080529
  6. DEXAMETHASONE TAB [Suspect]
     Indication: MANTLE CELL LYMPHOMA
     Dosage: 40 MG
     Dates: start: 20080529
  7. NEULASTA [Suspect]
     Indication: MANTLE CELL LYMPHOMA
     Dates: start: 20080529
  8. G-CSF(G-CSF) INJECTION [Suspect]
     Indication: MANTLE CELL LYMPHOMA
     Dates: start: 20080529

REACTIONS (8)
  - BODY TEMPERATURE INCREASED [None]
  - HAEMOGLOBIN DECREASED [None]
  - HYPOALBUMINAEMIA [None]
  - HYPOCALCAEMIA [None]
  - LYMPHOPENIA [None]
  - NEUTROPHIL COUNT DECREASED [None]
  - PLATELET COUNT DECREASED [None]
  - WHITE BLOOD CELL COUNT DECREASED [None]
